FAERS Safety Report 4468877-1 (Version None)
Quarter: 2004Q4

REPORT INFORMATION
  Report Type: 
  Country: None (occurrence: None)
  Receive Date: 20041008
  Receipt Date: 20040928
  Transmission Date: 20050328
  Serious: Yes (Death, Hospitalization, Disabling)
  Sender: FDA-Public Use
  Company Number: EMADSS2002005992

PATIENT
  Sex: Female
  Weight: 67 kg

DRUGS (7)
  1. REMICADE [Suspect]
     Route: 041
     Dates: start: 20020326
  2. REMICADE [Suspect]
     Indication: RHEUMATOID ARTHRITIS
     Route: 041
     Dates: start: 20020326
  3. AZATHIOPRINE [Concomitant]
     Indication: RHEUMATOID ARTHRITIS
     Route: 049
     Dates: start: 20001129
  4. LISINOPRIL [Concomitant]
     Indication: HYPERTENSION
     Route: 049
     Dates: start: 19980101
  5. PREDNISOLONE [Concomitant]
     Indication: RHEUMATOID ARTHRITIS
     Route: 049
  6. ZANTAC [Concomitant]
     Indication: GASTRIC ULCER
     Route: 049
     Dates: start: 19970101
  7. RELEFLEX [Concomitant]
     Indication: DRUG USE FOR UNKNOWN INDICATION
     Route: 049
     Dates: start: 19950101

REACTIONS (3)
  - ALVEOLITIS [None]
  - DYSPNOEA EXACERBATED [None]
  - PULMONARY FIBROSIS [None]
